FAERS Safety Report 5045077-8 (Version None)
Quarter: 2006Q2

REPORT INFORMATION
  Report Type: 
  Country: None (occurrence: None)
  Receive Date: 20060628
  Receipt Date: 20060615
  Transmission Date: 20061013
  Serious: Yes (Hospitalization)
  Sender: FDA-Public Use
  Company Number: THYM-10961

PATIENT
  Age: 47 Year
  Sex: Female

DRUGS (7)
  1. THYMOGLOBULIN [Suspect]
     Indication: RENAL TRANSPLANT
     Dosage: 75 MG IV
     Route: 042
     Dates: start: 20060501, end: 20060501
  2. THYMOGLOBULIN [Suspect]
     Indication: RENAL TRANSPLANT
     Dosage: 100 MG IV
     Route: 042
     Dates: start: 20060501, end: 20060501
  3. SOLU-MEDROL [Concomitant]
  4. PREDNISONE [Concomitant]
  5. CELLCEPT [Concomitant]
  6. CYTOVENE [Concomitant]
  7. TACROLIMUS [Concomitant]

REACTIONS (11)
  - ANURIA [None]
  - ARTHRALGIA [None]
  - BLOOD CREATININE INCREASED [None]
  - DIALYSIS [None]
  - HYPERAESTHESIA [None]
  - NECK PAIN [None]
  - PAIN IN EXTREMITY [None]
  - PAIN OF SKIN [None]
  - PULMONARY OEDEMA [None]
  - SERUM SICKNESS [None]
  - WHITE BLOOD CELL COUNT INCREASED [None]
